FAERS Safety Report 18160709 (Version 1)
Quarter: 2020Q3

REPORT INFORMATION
  Report Type: Spontaneous
  Country: AU (occurrence: AU)
  Receive Date: 20200818
  Receipt Date: 20200818
  Transmission Date: 20201103
  Serious: Yes (Hospitalization, Congenital Anomaly)
  Sender: FDA-Public Use
  Company Number: AU-TEVA-2020-AU-1815022

PATIENT
  Age: 33 Year
  Sex: Male

DRUGS (2)
  1. HYDROCHLOROTHIAZIDE. [Suspect]
     Active Substance: HYDROCHLOROTHIAZIDE
     Indication: THALASSAEMIA BETA
     Dosage: 25 MILLIGRAM DAILY;
     Route: 065
  2. DEFERASIROX. [Suspect]
     Active Substance: DEFERASIROX
     Indication: IRON OVERLOAD
     Dosage: 1440 MILLIGRAM DAILY; FILM COATED TABLETS
     Route: 048

REACTIONS (7)
  - Jaundice [Recovered/Resolved]
  - Cholestasis [Recovered/Resolved]
  - Metabolic acidosis [Recovering/Resolving]
  - Weight decreased [Recovering/Resolving]
  - Drug-induced liver injury [Recovered/Resolved]
  - Fanconi syndrome [Recovering/Resolving]
  - Hepatic necrosis [Recovered/Resolved]
